FAERS Safety Report 4270442-6 (Version None)
Quarter: 2004Q1

REPORT INFORMATION
  Report Type: 
  Country: None (occurrence: None)
  Receive Date: 20040114
  Receipt Date: 20031121
  Transmission Date: 20041129
  Serious: Yes (Life-Threatening)
  Sender: FDA-Public Use
  Company Number: US-GLAXOSMITHKLINE-A0440707A

PATIENT
  Age: 70 Year
  Sex: Male
  Weight: 65.9 kg

DRUGS (4)
  1. AVANDIA [Suspect]
     Indication: ILL-DEFINED DISORDER
     Dosage: 4MG PER DAY
     Route: 048
  2. ASPIRIN [Concomitant]
  3. ZOLOFT [Concomitant]
     Dosage: 50MG PER DAY
  4. COZAAR [Concomitant]
     Dosage: 50MG PER DAY

REACTIONS (3)
  - ASTHENIA [None]
  - IRON DEFICIENCY ANAEMIA [None]
  - PALLOR [None]
